FAERS Safety Report 17390907 (Version 1)
Quarter: 2020Q1

REPORT INFORMATION
  Report Type: Spontaneous
  Country: GB (occurrence: GB)
  Receive Date: 20200207
  Receipt Date: 20200207
  Transmission Date: 20200409
  Serious: Yes (Death)
  Sender: FDA-Public Use
  Company Number: GB-CELLTRION INC.-2020GB019054

PATIENT

DRUGS (18)
  1. RITUXIMAB (UNKNOWN) [Suspect]
     Active Substance: RITUXIMAB
     Indication: LYMPHOMA
     Dosage: PART OF R-CHOP REGIMEN
  2. METHOTREXATE. [Suspect]
     Active Substance: METHOTREXATE
     Indication: LYMPHOMA
     Route: 037
  3. CYCLOPHOSPHAMIDE. [Suspect]
     Active Substance: CYCLOPHOSPHAMIDE
     Indication: LYMPHOMA
     Dosage: PART OF R-CHOP REGIMEN
  4. CYCLOPHOSPHAMIDE. [Suspect]
     Active Substance: CYCLOPHOSPHAMIDE
     Dosage: PART OF DA-EPOCH-R REGIMEN
  5. DOXORUBICIN [Suspect]
     Active Substance: DOXORUBICIN
     Indication: LYMPHOMA
     Dosage: PART OF R-CHOP REGIMEN
  6. DOXORUBICIN [Suspect]
     Active Substance: DOXORUBICIN
     Dosage: PART OF DA-EPOCH-R REGIMEN
  7. VINCRISTINE [Suspect]
     Active Substance: VINCRISTINE
     Indication: LYMPHOMA
     Dosage: PART OF R-CHOP REGIMEN
  8. PREDNISOLONE. [Suspect]
     Active Substance: PREDNISOLONE
     Indication: LYMPHOMA
     Dosage: 70 MG
     Route: 048
  9. RITUXIMAB (UNKNOWN) [Suspect]
     Active Substance: RITUXIMAB
     Dosage: PART OF RICE CHEMOTHERAPY
  10. CYCLOPHOSPHAMIDE. [Suspect]
     Active Substance: CYCLOPHOSPHAMIDE
     Dosage: PART OF RICE CHEMOTHERAPY
  11. VINCRISTINE [Suspect]
     Active Substance: VINCRISTINE
     Dosage: PART OF DA-EPOCH-R REGIMEN
  12. CARBOPLATIN. [Suspect]
     Active Substance: CARBOPLATIN
     Indication: LYMPHOMA
     Dosage: PART OF RICE CHEMOTHERAPY
  13. IFOSFAMIDE. [Suspect]
     Active Substance: IFOSFAMIDE
     Indication: LYMPHOMA
     Dosage: PART OF RICE CHEMOTHERAPY
  14. RITUXIMAB (UNKNOWN) [Suspect]
     Active Substance: RITUXIMAB
     Dosage: PART OF DA-EPOCH-R REGIMEN
  15. PREDNISOLONE. [Suspect]
     Active Substance: PREDNISOLONE
     Dosage: PART OF R-CHOP REGIMEN
  16. ETOPOSIDE. [Suspect]
     Active Substance: ETOPOSIDE
     Indication: LYMPHOMA
     Dosage: PART OF DA-EPOCH-R REGIMEN
  17. ETOPOSIDE. [Suspect]
     Active Substance: ETOPOSIDE
     Dosage: PART OF RICE CHEMOTHERAPY
  18. PREDNISONE. [Suspect]
     Active Substance: PREDNISONE
     Indication: LYMPHOMA
     Dosage: PART OF R-CHOP REGIMEN

REACTIONS (3)
  - Drug ineffective [Unknown]
  - Disease progression [Fatal]
  - Off label use [Unknown]
